FAERS Safety Report 22618806 (Version 1)
Quarter: 2023Q2

REPORT INFORMATION
  Report Type: Spontaneous
  Country: FR (occurrence: FR)
  Receive Date: 20230620
  Receipt Date: 20230620
  Transmission Date: 20230722
  Serious: No
  Sender: FDA-Public Use
  Company Number: FR-ALKEM LABORATORIES LIMITED-FR-ALKEM-2023-04322

PATIENT
  Age: 35 Year

DRUGS (3)
  1. EVEROLIMUS [Interacting]
     Active Substance: EVEROLIMUS
     Indication: Immunosuppressant drug therapy
     Dosage: UNK
     Route: 065
  2. EVEROLIMUS [Interacting]
     Active Substance: EVEROLIMUS
     Dosage: UNK (DOSE REDUCED BY ONE THIRD)
     Route: 065
  3. LOPINAVIR\RITONAVIR [Interacting]
     Active Substance: LOPINAVIR\RITONAVIR
     Indication: COVID-19
     Dosage: UNK, BID (400/100 MG)
     Route: 065

REACTIONS (3)
  - COVID-19 [Unknown]
  - Drug interaction [Unknown]
  - Drug level increased [Unknown]
